FAERS Safety Report 18753423 (Version 1)
Quarter: 2021Q1

REPORT INFORMATION
  Report Type: Spontaneous
  Country: US (occurrence: US)
  Receive Date: 20210118
  Receipt Date: 20210118
  Transmission Date: 20210419
  Serious: No
  Sender: FDA-Public Use
  Company Number: US-JUBILANT CADISTA PHARMACEUTICALS-2020JUB00226

PATIENT
  Sex: Male
  Weight: 93.42 kg

DRUGS (3)
  1. TERAZOSIN [Suspect]
     Active Substance: TERAZOSIN HYDROCHLORIDE
     Indication: LOWER URINARY TRACT SYMPTOMS
     Dosage: 4 MG, 1X/DAY BEFORE BED
     Route: 048
     Dates: start: 2019, end: 20200624
  2. TERAZOSIN [Suspect]
     Active Substance: TERAZOSIN HYDROCHLORIDE
     Dosage: 2 MG, 1X/DAY BEFORE BED
     Route: 048
     Dates: start: 202007, end: 2020
  3. TERAZOSIN [Suspect]
     Active Substance: TERAZOSIN HYDROCHLORIDE
     Dosage: 4 MG, 1X/DAY BEFORE BED
     Route: 048
     Dates: start: 20200625, end: 202007

REACTIONS (4)
  - Dizziness postural [Recovering/Resolving]
  - Nocturia [Not Recovered/Not Resolved]
  - Dizziness [Recovering/Resolving]
  - Off label use [Recovered/Resolved]

NARRATIVE: CASE EVENT DATE: 2019
